FAERS Safety Report 6211114-8 (Version None)
Quarter: 2009Q2

REPORT INFORMATION
  Report Type: 
  Country: None (occurrence: None)
  Receive Date: 20090528
  Receipt Date: 20090518
  Transmission Date: 20091009
  Serious: Yes (Death, Hospitalization, Other)
  Sender: FDA-Public Use
  Company Number: 2009US001854

PATIENT
  Age: 64 Year
  Sex: Male

DRUGS (3)
  1. PROGRAF [Suspect]
     Indication: HEART TRANSPLANT
     Dates: start: 20051201
  2. MYCOPHENOLATE MOFETIL [Suspect]
     Indication: HEART TRANSPLANT
     Dates: start: 20051201
  3. PREDNISONE TAB [Suspect]
     Dates: start: 20051201

REACTIONS (6)
  - AMERICAN TRYPANOSOMIASIS [None]
  - ATRIAL FLUTTER [None]
  - BLOOD DISORDER [None]
  - HEART TRANSPLANT REJECTION [None]
  - RENAL FAILURE [None]
  - TREMOR [None]
